FAERS Safety Report 13305965 (Version 1)
Quarter: 2017Q1

REPORT INFORMATION
  Report Type: Spontaneous
  Country: US (occurrence: UG)
  Receive Date: 20170308
  Receipt Date: 20170308
  Transmission Date: 20170428
  Serious: Yes (Hospitalization, Other)
  Sender: FDA-Public Use
  Company Number: US-BRISTOL-MYERS SQUIBB COMPANY-BMS-2017-016817

PATIENT
  Sex: Female
  Weight: 37.5 kg

DRUGS (1)
  1. COUMADIN [Suspect]
     Active Substance: WARFARIN SODIUM
     Indication: PRODUCT USED FOR UNKNOWN INDICATION
     Dosage: UNK
     Route: 065

REACTIONS (5)
  - International normalised ratio increased [Unknown]
  - Pigmentation disorder [Unknown]
  - Peripheral swelling [Unknown]
  - Haemorrhage [Unknown]
  - Pneumonia [Unknown]
